FAERS Safety Report 11897985 (Version 1)
Quarter: 2016Q1

REPORT INFORMATION
  Report Type: Report from Study
  Country: JP (occurrence: JP)
  Receive Date: 20160108
  Receipt Date: 20160108
  Transmission Date: 20160526
  Serious: Yes (Other)
  Sender: FDA-Public Use
  Company Number: JP-AMGEN-JPNNI2015141230

PATIENT
  Sex: Male

DRUGS (13)
  1. AFINITOR [Concomitant]
     Active Substance: EVEROLIMUS
     Dosage: UNK
     Dates: start: 20140916, end: 20140930
  2. DENOSUMAB [Suspect]
     Active Substance: DENOSUMAB
     Indication: METASTASES TO BONE
     Dosage: 120 MG, UNK
     Route: 058
     Dates: start: 20130708
  3. NORVASC [Concomitant]
     Active Substance: AMLODIPINE BESYLATE
     Dosage: 5 MG, QD
     Route: 048
     Dates: start: 20140414, end: 20140930
  4. INLYTA [Concomitant]
     Active Substance: AXITINIB
     Dosage: UNK
     Dates: start: 20140520, end: 20140915
  5. SODIUM BICARBONATE. [Concomitant]
     Active Substance: SODIUM BICARBONATE
     Dosage: 1.2 G, QD
     Route: 048
     Dates: start: 20120702, end: 20141016
  6. ARGAMATE [Concomitant]
     Active Substance: CALCIUM POLYSTYRENE SULFONATE
     Dosage: 100 G, QD
     Route: 048
     Dates: start: 20120123, end: 20141016
  7. SPIRIVA [Concomitant]
     Active Substance: TIOTROPIUM BROMIDE MONOHYDRATE
     Dosage: 2 DF, QD
     Route: 055
     Dates: end: 20140830
  8. FLIVAS [Concomitant]
     Active Substance: NAFTOPIDIL
     Dosage: 75 MG, QD
     Route: 048
     Dates: start: 20120502, end: 20140930
  9. LOPEMIN                            /00384302/ [Concomitant]
     Active Substance: LOPERAMIDE HYDROCHLORIDE
     Dosage: 1 MG, AS NECESSARY
     Route: 048
     Dates: start: 20140602, end: 20140730
  10. SYMBICORT [Concomitant]
     Active Substance: BUDESONIDE\FORMOTEROL FUMARATE DIHYDRATE
     Dosage: 4 DF, QD
     Route: 055
     Dates: end: 20140830
  11. NEXIUM [Concomitant]
     Active Substance: ESOMEPRAZOLE MAGNESIUM
     Dosage: 20 MG, QD
     Route: 048
     Dates: start: 20140602, end: 20140930
  12. KREMEZIN [Concomitant]
     Active Substance: ACTIVATED CHARCOAL
     Dosage: 6 MG, QD
     Route: 048
     Dates: start: 20120604, end: 20141016
  13. ALEVIATIN                          /00017401/ [Concomitant]
     Active Substance: PHENYTOIN SODIUM
     Dosage: 200 MG, QD
     Route: 048
     Dates: start: 20141021, end: 20141028

REACTIONS (2)
  - Hypocalcaemia [Not Recovered/Not Resolved]
  - Osteonecrosis of jaw [Not Recovered/Not Resolved]

NARRATIVE: CASE EVENT DATE: 20140930
